FAERS Safety Report 24679451 (Version 1)
Quarter: 2024Q4

REPORT INFORMATION
  Report Type: Spontaneous
  Country: KR (occurrence: KR)
  Receive Date: 20241129
  Receipt Date: 20241129
  Transmission Date: 20250114
  Serious: Yes (Other)
  Sender: SANOFI AVENTIS
  Company Number: KR-SA-2024SA349427

PATIENT
  Age: 63 Year
  Sex: Male
  Weight: 70 kg

DRUGS (15)
  1. TOUJEO [Suspect]
     Active Substance: INSULIN GLARGINE
     Dosage: 1 DF, QD
     Dates: start: 20210102
  2. GLICLAZIDE [Suspect]
     Active Substance: GLICLAZIDE
     Dosage: 1 DF QD
     Dates: start: 20210102
  3. CYANOCOBALAMIN [Suspect]
     Active Substance: CYANOCOBALAMIN
     Dosage: 0.5 DF QD
     Dates: start: 20210102
  4. PYRIDOXINE HYDROCHLORIDE [Suspect]
     Active Substance: PYRIDOXINE HYDROCHLORIDE
     Dosage: 0.5 DF QD
     Dates: start: 20210102
  5. THIOCTIC ACID [Suspect]
     Active Substance: THIOCTIC ACID
     Dosage: 1 DF, QD
     Dates: start: 20210102
  6. ACETAMINOPHEN [Suspect]
     Active Substance: ACETAMINOPHEN
     Dosage: 0.33 DF QD
     Dates: start: 20210102
  7. TRAMADOL HYDROCHLORIDE [Suspect]
     Active Substance: TRAMADOL HYDROCHLORIDE
     Dosage: 0.33 DF QD
     Dates: start: 20210102
  8. METFORMIN HYDROCHLORIDE [Suspect]
     Active Substance: METFORMIN HYDROCHLORIDE
     Dosage: 1 DF, QD
     Dates: start: 20210102
  9. ROPINIROLE HYDROCHLORIDE [Suspect]
     Active Substance: ROPINIROLE HYDROCHLORIDE
     Dosage: 0.33 DF QD
     Dates: start: 20210102
  10. AMITRIPTYLINE HYDROCHLORIDE [Suspect]
     Active Substance: AMITRIPTYLINE HYDROCHLORIDE
     Dosage: 0.33 DF, QD
     Dates: start: 20210102
  11. PREGABALIN [Suspect]
     Active Substance: PREGABALIN
     Dosage: 0.5 DF QD
     Dates: start: 20210102
  12. FENOFIBRATE [Suspect]
     Active Substance: FENOFIBRATE
     Dosage: 1 DF, QD
     Dates: start: 20210102
  13. SARPOGRELATE HYDROCHLORIDE [Suspect]
     Active Substance: SARPOGRELATE HYDROCHLORIDE
     Dosage: 1 DF, QD
     Dates: start: 20210102
  14. BENFOTIAMINE [Suspect]
     Active Substance: BENFOTIAMINE
     Dosage: 0.5 DF QD
     Dates: start: 20210102
  15. PITAVASTATIN CALCIUM [Suspect]
     Active Substance: PITAVASTATIN CALCIUM
     Dosage: 1 DF, QD
     Dates: start: 20210102

REACTIONS (2)
  - Blindness transient [Recovered/Resolved]
  - Nausea [Recovered/Resolved]

NARRATIVE: CASE EVENT DATE: 20210102
